FAERS Safety Report 9125117 (Version 2)
Quarter: 2013Q4

REPORT INFORMATION
  Report Type: Spontaneous
  Country: GB (occurrence: GB)
  Receive Date: 20130121
  Receipt Date: 20131001
  Transmission Date: 20140711
  Serious: Yes (Life-Threatening)
  Sender: FDA-Public Use
  Company Number: PHHY2013GB004909

PATIENT
  Age: 63 Year
  Sex: Female
  Weight: 80 kg

DRUGS (5)
  1. CLARITHROMYCIN [Suspect]
     Indication: SEPSIS
     Dosage: 500 MG, UNK
     Route: 048
     Dates: start: 20121220, end: 20121220
  2. METOCLOPRAMIDE [Suspect]
     Indication: NAUSEA
     Dosage: 10 MG, UNK
     Route: 048
     Dates: start: 20121220, end: 20121220
  3. VOLPLEX [Suspect]
     Indication: HYPOTENSION
     Dosage: 500 ML, UNK
     Route: 042
     Dates: start: 20121220, end: 20121220
  4. MEROPENEM [Concomitant]
     Route: 042
     Dates: start: 201211
  5. GENTAMICIN [Concomitant]
     Route: 042
     Dates: start: 201211

REACTIONS (7)
  - Stridor [Recovered/Resolved]
  - Erythema [Recovered/Resolved]
  - Swelling face [Recovered/Resolved]
  - Oxygen saturation decreased [Recovered/Resolved]
  - Hypotension [Recovered/Resolved]
  - Wheezing [Recovered/Resolved]
  - Breath sounds abnormal [Recovered/Resolved]
